FAERS Safety Report 16596166 (Version 2)
Quarter: 2019Q3

REPORT INFORMATION
  Report Type: Spontaneous
  Country: AT (occurrence: AT)
  Receive Date: 20190719
  Receipt Date: 20190730
  Transmission Date: 20191004
  Serious: Yes (Hospitalization)
  Sender: FDA-Public Use
  Company Number: AT-SA-2019SA122727

PATIENT
  Age: 33 Year
  Sex: Female
  Weight: 53 kg

DRUGS (3)
  1. FABRAZYME [Suspect]
     Active Substance: AGALSIDASE BETA
     Indication: FABRY^S DISEASE
     Dosage: 1 MG/KG, QOW
     Route: 041
     Dates: start: 20170628
  2. FABRAZYME [Suspect]
     Active Substance: AGALSIDASE BETA
     Dosage: 0.66 MG/KG, QOW
     Route: 041
     Dates: start: 20190404
  3. FABRAZYME [Suspect]
     Active Substance: AGALSIDASE BETA
     Dosage: 0.094 MG/KG, QOW
     Route: 041
     Dates: start: 20190404

REACTIONS (3)
  - Vaginal haemorrhage [Unknown]
  - Abdominal pain [Unknown]
  - Exposure during pregnancy [Unknown]

NARRATIVE: CASE EVENT DATE: 20190607
